FAERS Safety Report 25945573 (Version 2)
Quarter: 2025Q4

REPORT INFORMATION
  Report Type: Spontaneous
  Country: CA (occurrence: CA)
  Receive Date: 20251021
  Receipt Date: 20251209
  Transmission Date: 20260117
  Serious: Yes (Other)
  Sender: PFIZER
  Company Number: CA-PFIZER INC-202500206557

PATIENT
  Age: 30 Year
  Sex: Female
  Weight: 67.2 kg

DRUGS (4)
  1. IXIFI [Suspect]
     Active Substance: INFLIXIMAB-QBTX
     Indication: Crohn^s disease
     Dosage: 400 MG, EVERY 6 WEEKS
     Route: 042
     Dates: start: 20250612
  2. IXIFI [Suspect]
     Active Substance: INFLIXIMAB-QBTX
     Dosage: 400 MG, EVERY 6 WEEKS
     Route: 042
     Dates: start: 20250902
  3. IXIFI [Suspect]
     Active Substance: INFLIXIMAB-QBTX
     Dosage: 400 MG, EVERY 6 WEEKS (400 MG, EVERY 6 WEEKS)
     Route: 042
     Dates: start: 20251016
  4. IRON [Concomitant]
     Active Substance: IRON
     Dosage: UNK

REACTIONS (1)
  - Condition aggravated [Not Recovered/Not Resolved]

NARRATIVE: CASE EVENT DATE: 20251001
